FAERS Safety Report 9091469 (Version 1)
Quarter: 2013Q1

REPORT INFORMATION
  Report Type: Spontaneous
  Country: VE (occurrence: VE)
  Receive Date: 20130201
  Receipt Date: 20130201
  Transmission Date: 20140127
  Serious: Yes (Death)
  Sender: FDA-Public Use
  Company Number: VE-PFIZER INC-2013042063

PATIENT
  Sex: Male

DRUGS (1)
  1. CADUET [Suspect]
     Dosage: 5/10 MG ONCE DAILY
     Dates: start: 201002, end: 201211

REACTIONS (1)
  - Death [Fatal]
